FAERS Safety Report 8886992 (Version 4)
Quarter: 2014Q2

REPORT INFORMATION
  Report Type: Report from Study
  Country: DE (occurrence: DE)
  Receive Date: 20121105
  Receipt Date: 20140609
  Transmission Date: 20141212
  Serious: Yes (Hospitalization)
  Sender: FDA-Public Use
  Company Number: DE-ROCHE-1149249

PATIENT
  Age: 64 Year
  Sex: Female
  Weight: 64 kg

DRUGS (15)
  1. BEVACIZUMAB [Suspect]
     Indication: COLON CANCER
     Dosage: D1 D14 LAST DOSE PRIOR TO SAE: 24/SEP/2012
     Route: 042
     Dates: start: 20120730
  2. BEVACIZUMAB [Suspect]
     Dosage: D1 D14
     Route: 042
  3. BEVACIZUMAB [Suspect]
     Route: 042
     Dates: start: 20120827
  4. FLUOROURACIL [Suspect]
     Indication: COLON CANCER
     Dosage: D1+D21 LAST DOSE PRIOR TO SAE: 25/SEP/2012
     Route: 040
     Dates: start: 20120730
  5. FLUOROURACIL [Suspect]
     Dosage: D1+21
     Route: 040
  6. FLUOROURACIL [Suspect]
     Dosage: 2+4
     Route: 042
  7. FLUOROURACIL [Suspect]
     Route: 042
     Dates: start: 20120827
  8. FOLINIC ACID [Suspect]
     Indication: COLON CANCER
     Dosage: LAST DOSE PRIOR TO SAE: 25/SEP/2012, D1PLUS D21D14
     Route: 042
     Dates: start: 20120730
  9. FOLINIC ACID [Suspect]
     Route: 042
     Dates: start: 20120827
  10. OXALIPLATIN [Suspect]
     Indication: COLON CANCER
     Dosage: 1 D14 LAST DOSE PRIOR TO SAE: 24/SEP/2012
     Route: 042
     Dates: start: 20120730
  11. OXALIPLATIN [Suspect]
     Route: 042
     Dates: start: 20120827
  12. RAMIPRIL [Concomitant]
     Route: 065
  13. CLOPIDOGREL [Concomitant]
     Route: 065
  14. PANTOPRAZOL [Concomitant]
     Route: 065
  15. SIMVASTATIN [Concomitant]
     Route: 065

REACTIONS (4)
  - Renal failure [Recovered/Resolved]
  - Fatigue [Not Recovered/Not Resolved]
  - Myocardial infarction [Recovered/Resolved]
  - Renal failure acute [Recovered/Resolved]
